FAERS Safety Report 5021288-2 (Version None)
Quarter: 2006Q2

REPORT INFORMATION
  Report Type: 
  Country: None (occurrence: None)
  Receive Date: 20060608
  Receipt Date: 20060315
  Transmission Date: 20061013
  Serious: Yes (Life-Threatening, Hospitalization, Disabling)
  Sender: FDA-Public Use
  Company Number: FR-GLAXOSMITHKLINE-B0416678A

PATIENT
  Age: 44 Year
  Sex: Female

DRUGS (5)
  1. DEROXAT [Suspect]
     Dosage: 20MG TWICE PER DAY
     Route: 048
     Dates: start: 20051101
  2. TRILEPTAL [Suspect]
     Indication: EPILEPSY
     Route: 065
     Dates: start: 20060201, end: 20060401
  3. IMUREL [Concomitant]
  4. IMOVANE [Concomitant]
  5. IMODIUM [Concomitant]

REACTIONS (4)
  - DIZZINESS [None]
  - MALAISE [None]
  - ORTHOSTATIC HYPOTENSION [None]
  - VISION BLURRED [None]
